FAERS Safety Report 9190511 (Version 2)
Quarter: 2013Q1

REPORT INFORMATION
  Report Type: Spontaneous
  Country: IT (occurrence: IT)
  Receive Date: 20130326
  Receipt Date: 20130326
  Transmission Date: 20140127
  Serious: Yes (Other)
  Sender: FDA-Public Use
  Company Number: IT-TEVA-391875ISR

PATIENT
  Age: 76 Year
  Sex: Female
  Weight: 69 kg

DRUGS (8)
  1. FLUOROURACIL [Suspect]
     Indication: BREAST CANCER
     Dosage: 1000 MILLIGRAM DAILY; 1000 MG CYCLICAL
     Route: 042
     Dates: start: 20130125, end: 20130223
  2. METHOTREXATE [Suspect]
     Indication: BREAST CANCER
     Dosage: 65 MILLIGRAM DAILY; 65 MG CYCLICAL
     Route: 042
     Dates: start: 20130125, end: 20130223
  3. CYCLOPHOSPHAMIDE [Suspect]
     Indication: BREAST CANCER
     Dosage: 1000 MILLIGRAM DAILY; 1000 MG CYCLICAL
     Route: 042
     Dates: start: 20130125, end: 20130223
  4. TOTALIP [Concomitant]
  5. CO-EFFERALGAN [Concomitant]
  6. DICLOREUM [Concomitant]
  7. REAPTAN [Concomitant]
  8. LUTEIN OMEGA 3 [Concomitant]
     Route: 048

REACTIONS (4)
  - Neutropenia [Recovered/Resolved]
  - Azotaemia [Recovering/Resolving]
  - Hypercreatininaemia [Recovering/Resolving]
  - Stomatitis [Recovering/Resolving]
